FAERS Safety Report 10011210 (Version 1)
Quarter: 2014Q1

REPORT INFORMATION
  Report Type: Spontaneous
  Country: TR (occurrence: None)
  Receive Date: 20140312
  Receipt Date: 20140312
  Transmission Date: 20141002
  Serious: Yes (Hospitalization)
  Sender: FDA-Public Use
  Company Number: 2014P1001837

PATIENT
  Age: 26 Year
  Sex: Female

DRUGS (2)
  1. FENTANYL [Suspect]
  2. MEPERIDINE [Suspect]

REACTIONS (8)
  - Loss of consciousness [None]
  - Sinus tachycardia [None]
  - Nervous system disorder [None]
  - Coma [None]
  - Respiratory arrest [None]
  - Incorrect dose administered [None]
  - Drug abuse [None]
  - Self-medication [None]
